FAERS Safety Report 5524480-3 (Version None)
Quarter: 2007Q4

REPORT INFORMATION
  Report Type: 
  Country: None (occurrence: None)
  Receive Date: 20071122
  Receipt Date: 20071114
  Transmission Date: 20080405
  Serious: Yes (Other)
  Sender: FDA-Public Use
  Company Number: PHBS2007BR18664

PATIENT
  Age: 59 Year
  Sex: Female
  Weight: 82.8 kg

DRUGS (2)
  1. DIAMICRON [Concomitant]
     Indication: DIABETES MELLITUS
     Dosage: 1 TABLET IN THE MORNING, QD
     Route: 048
  2. CODATEN [Suspect]
     Indication: ARTHRALGIA
     Dosage: 1 DF, QD
     Route: 048
     Dates: start: 20071031, end: 20071101

REACTIONS (4)
  - BRAIN OEDEMA [None]
  - DYSPHONIA [None]
  - MALAISE [None]
  - PAIN [None]
